FAERS Safety Report 5642905-X (Version None)
Quarter: 2008Q1

REPORT INFORMATION
  Report Type: 
  Country: None (occurrence: None)
  Receive Date: 20080227
  Receipt Date: 20080227
  Transmission Date: 20080703
  Serious: Yes (Life-Threatening, Hospitalization)
  Sender: FDA-Public Use
  Company Number: None

PATIENT
  Age: 23 Year
  Sex: Female
  Weight: 59.4212 kg

DRUGS (4)
  1. KEPPRA [Suspect]
     Indication: EPILEPSY
     Dosage: 1000 TWICE DAILY
     Dates: start: 20060115, end: 20080222
  2. TOPAMAX [Suspect]
     Indication: AFFECTIVE DISORDER
     Dosage: 100  ONCE DAILY
     Dates: start: 20071101, end: 20080222
  3. TOPAMAX [Suspect]
     Indication: EPILEPSY
     Dosage: 100  ONCE DAILY
     Dates: start: 20071101, end: 20080222
  4. TOPAMAX [Suspect]
     Indication: MIGRAINE
     Dosage: 100  ONCE DAILY
     Dates: start: 20071101, end: 20080222

REACTIONS (3)
  - DEPRESSION [None]
  - INCORRECT DOSE ADMINISTERED [None]
  - SUICIDE ATTEMPT [None]
